FAERS Safety Report 21434241 (Version 2)
Quarter: 2023Q1

REPORT INFORMATION
  Report Type: Spontaneous
  Country: US (occurrence: US)
  Receive Date: 20221010
  Receipt Date: 20230305
  Transmission Date: 20230417
  Serious: No
  Sender: FDA-Public Use
  Company Number: US-SANOFI-01308701

PATIENT
  Age: 53 Year
  Sex: Female

DRUGS (2)
  1. LANTUS SOLOSTAR [Suspect]
     Active Substance: INSULIN GLARGINE
     Indication: Type 2 diabetes mellitus
     Dosage: 35-40 / 38-38UNITS, BID
  2. VICTOZA [Concomitant]
     Active Substance: LIRAGLUTIDE
     Indication: Migraine

REACTIONS (3)
  - Migraine [Unknown]
  - Inappropriate schedule of product administration [Unknown]
  - Product storage error [Unknown]
